FAERS Safety Report 18564302 (Version 1)
Quarter: 2020Q4

REPORT INFORMATION
  Report Type: Other
  Country: CN (occurrence: CN)
  Receive Date: 20201201
  Receipt Date: 20201201
  Transmission Date: 20210114
  Serious: Yes (Death, Other)
  Sender: FDA-Public Use
  Company Number: CN-ROCHE-2721890

PATIENT

DRUGS (6)
  1. NIVOLUMAB [Suspect]
     Active Substance: NIVOLUMAB
     Indication: NON-SMALL CELL LUNG CANCER
     Route: 065
  2. APATINIB [Suspect]
     Active Substance: APATINIB
     Indication: NON-SMALL CELL LUNG CANCER
     Route: 065
  3. CAMRELIZUMAB [Suspect]
     Active Substance: CAMRELIZUMAB
     Indication: NON-SMALL CELL LUNG CANCER
     Route: 065
  4. BEVACIZUMAB. [Suspect]
     Active Substance: BEVACIZUMAB
     Indication: NON-SMALL CELL LUNG CANCER
     Route: 065
  5. CATEQUENTINIB. [Suspect]
     Active Substance: CATEQUENTINIB
     Indication: NON-SMALL CELL LUNG CANCER
     Dosage: 10 MG-12 MG (2 WEEKS ON/1 WEEK OFF)
     Route: 065
  6. PEMBROLIZUMAB. [Suspect]
     Active Substance: PEMBROLIZUMAB
     Indication: NON-SMALL CELL LUNG CANCER
     Route: 065

REACTIONS (24)
  - Thrombocytopenia [Unknown]
  - Interstitial lung disease [Unknown]
  - Renal impairment [Unknown]
  - White blood cell count decreased [Unknown]
  - Hypothyroidism [Unknown]
  - Myalgia [Unknown]
  - Hepatic function abnormal [Unknown]
  - Embolism arterial [Fatal]
  - Cerebral infarction [Fatal]
  - Hypotension [Unknown]
  - Pericarditis [Unknown]
  - Fatigue [Unknown]
  - Diarrhoea [Unknown]
  - Pruritus [Unknown]
  - Anaemia [Unknown]
  - Proteinuria [Unknown]
  - Vomiting [Unknown]
  - Stomatitis [Unknown]
  - Palmar-plantar erythrodysaesthesia syndrome [Unknown]
  - Nausea [Unknown]
  - Rash [Unknown]
  - Decreased appetite [Unknown]
  - Haemangioma [Unknown]
  - Oedema [Unknown]
